FAERS Safety Report 9522827 (Version 2)
Quarter: 2014Q3

REPORT INFORMATION
  Report Type: Spontaneous
  Country: BR (occurrence: BR)
  Receive Date: 20130913
  Receipt Date: 20140724
  Transmission Date: 20150326
  Serious: Yes (Hospitalization, Other)
  Sender: FDA-Public Use
  Company Number: BR-JNJFOC-20130903655

PATIENT
  Sex: Female
  Weight: 66 kg

DRUGS (1)
  1. REMICADE [Suspect]
     Active Substance: INFLIXIMAB
     Indication: CROHN^S DISEASE
     Route: 042
     Dates: start: 20101217, end: 20121031

REACTIONS (8)
  - Decreased immune responsiveness [Unknown]
  - Skin exfoliation [Recovered/Resolved]
  - Lower respiratory tract infection bacterial [Not Recovered/Not Resolved]
  - Pneumonia [Recovered/Resolved]
  - Drug-induced liver injury [Recovered/Resolved]
  - Aspergillus infection [Recovered/Resolved with Sequelae]
  - Furuncle [Recovered/Resolved]
  - Tuberculosis [Not Recovered/Not Resolved]

NARRATIVE: CASE EVENT DATE: 2011
